FAERS Safety Report 23383886 (Version 1)
Quarter: 2024Q1

REPORT INFORMATION
  Report Type: Spontaneous
  Country: US (occurrence: None)
  Receive Date: 20240109
  Receipt Date: 20240109
  Transmission Date: 20240410
  Serious: No
  Sender: FDA-Public Use
  Company Number: None

PATIENT
  Sex: Female

DRUGS (7)
  1. HUMIRA [Suspect]
     Active Substance: ADALIMUMAB
     Indication: Rheumatoid arthritis
     Dosage: 40MG EVERY 7 DAYS SUBCUTANEOUSLY?
     Route: 058
     Dates: start: 202008
  2. ATENOLOL [Concomitant]
     Active Substance: ATENOLOL
  3. LATANOPROST [Concomitant]
     Active Substance: LATANOPROST
  4. PREDNISONE [Concomitant]
     Active Substance: PREDNISONE
  5. SPIRIVA RESPIVIAT [Concomitant]
  6. BREP ELLIPTA [Concomitant]
  7. DULOXETINE [Concomitant]
     Active Substance: DULOXETINE

REACTIONS (2)
  - Arthralgia [None]
  - Drug ineffective [None]
